FAERS Safety Report 5700131-X (Version None)
Quarter: 2008Q2

REPORT INFORMATION
  Report Type: 
  Country: None (occurrence: None)
  Receive Date: 20080410
  Receipt Date: 20080404
  Transmission Date: 20081010
  Serious: Yes (Death, Hospitalization, Other)
  Sender: FDA-Public Use
  Company Number: PHBS2007JP17395

PATIENT
  Age: 69 Year
  Sex: Female
  Weight: 54 kg

DRUGS (17)
  1. GLEEVEC [Suspect]
     Indication: ACUTE LYMPHOCYTIC LEUKAEMIA
     Dosage: INTERMITTENT
     Route: 048
     Dates: start: 20070101
  2. GLEEVEC [Suspect]
     Dosage: 400MG/DAY
     Route: 048
     Dates: start: 20040422, end: 20040521
  3. GLEEVEC [Suspect]
     Dosage: 400MG/DAY
     Route: 048
     Dates: start: 20070119, end: 20070208
  4. GLEEVEC [Suspect]
     Dosage: 400MG/DAY
     Route: 048
     Dates: start: 20070326, end: 20070331
  5. GLEEVEC [Suspect]
     Dosage: 400MG/DAY
     Route: 048
     Dates: start: 20070425, end: 20070501
  6. GLEEVEC [Suspect]
     Dosage: 400MG/DAY
     Route: 048
     Dates: start: 20070602, end: 20070606
  7. GLEEVEC [Suspect]
     Dosage: 400MG/DAY
     Route: 048
     Dates: start: 20070711, end: 20070715
  8. GLEEVEC [Suspect]
     Dosage: 400MG/DAY
     Route: 048
     Dates: start: 20070822, end: 20070826
  9. GLEEVEC [Suspect]
     Dosage: 200MG/DAY
     Route: 048
     Dates: start: 20070906, end: 20071003
  10. PREDONINE [Concomitant]
     Dosage: 60 MG, UNK
  11. PREDONINE [Concomitant]
     Dosage: 60 MG, UNK
     Route: 048
  12. PREDONINE [Concomitant]
     Dosage: 60 MG, UNK
     Route: 048
  13. PREDONINE [Concomitant]
     Dosage: 60 MG, UNK
     Route: 048
  14. PREDONINE [Concomitant]
     Dosage: 60 MG, UNK
     Route: 048
  15. PREDONINE [Concomitant]
     Dosage: 60 MG, UNK
     Route: 048
  16. PREDONINE [Concomitant]
     Dosage: 60 MG, UNK
     Route: 048
  17. PREDONINE [Concomitant]
     Dosage: 60 MG, UNK
     Route: 048
     Dates: start: 20071003

REACTIONS (14)
  - ABDOMINAL DISTENSION [None]
  - ACUTE LYMPHOCYTIC LEUKAEMIA [None]
  - ALANINE AMINOTRANSFERASE INCREASED [None]
  - ASPARTATE AMINOTRANSFERASE INCREASED [None]
  - B-CELL LYMPHOMA [None]
  - BONE MARROW FAILURE [None]
  - CHROMOSOMAL MUTATION [None]
  - DYSPNOEA [None]
  - GENERALISED OEDEMA [None]
  - LEUKAEMIC INFILTRATION EXTRAMEDULLARY [None]
  - MALAISE [None]
  - MULTI-ORGAN FAILURE [None]
  - NAUSEA [None]
  - PYREXIA [None]
